FAERS Safety Report 8089555-6 (Version None)
Quarter: 2012Q1

REPORT INFORMATION
  Report Type: 
  Country: None (occurrence: None)
  Receive Date: 20120128
  Receipt Date: 20110616
  Transmission Date: 20120608
  Serious: No
  Sender: FDA-Public Use
  Company Number: US-ABBOTT-11P-163-0733482-00

PATIENT
  Sex: Female
  Weight: 108.05 kg

DRUGS (13)
  1. METHOTREXATE [Concomitant]
     Indication: RHEUMATOID ARTHRITIS
  2. HUMIRA [Suspect]
     Indication: RHEUMATOID ARTHRITIS
     Dates: start: 20110201
  3. CALCIUM [Concomitant]
     Indication: MINERAL SUPPLEMENTATION
  4. VITAMIN D [Concomitant]
     Indication: VITAMIN SUPPLEMENTATION
  5. METHOTREXATE [Concomitant]
  6. PREDNISONE TAB [Concomitant]
     Indication: PAIN
  7. PREDNISONE TAB [Concomitant]
     Indication: INTERVERTEBRAL DISC PROTRUSION
  8. GABAPENTIN [Concomitant]
     Indication: SPINAL COLUMN STENOSIS
  9. TRAMADOL HCL [Concomitant]
     Indication: PAIN
  10. HYDROCHLOROTHIAZIDE [Concomitant]
     Indication: HYPERTENSION
  11. LISINOPRIL [Concomitant]
     Indication: HYPERTENSION
  12. FOLIC ACID [Concomitant]
     Indication: RHEUMATOID ARTHRITIS
  13. DICLOFENAC [Concomitant]
     Indication: OSTEOARTHRITIS

REACTIONS (6)
  - PNEUMONIA [None]
  - PAIN IN EXTREMITY [None]
  - DRUG INEFFECTIVE [None]
  - PAINFUL RESPIRATION [None]
  - NASOPHARYNGITIS [None]
  - OEDEMA PERIPHERAL [None]
